FAERS Safety Report 4567469-3 (Version None)
Quarter: 2005Q1

REPORT INFORMATION
  Report Type: 
  Country: None (occurrence: None)
  Receive Date: 20050201
  Receipt Date: 20041228
  Transmission Date: 20050727
  Serious: Yes (Hospitalization)
  Sender: FDA-Public Use
  Company Number: JP-MERCK-0501USA00210

PATIENT
  Age: 69 Year
  Sex: Male

DRUGS (3)
  1. PEPCID RPD [Suspect]
     Route: 048
  2. NORVASC [Concomitant]
     Route: 048
  3. HALICON [Concomitant]
     Route: 048

REACTIONS (2)
  - ADVERSE EVENT [None]
  - CHOLELITHIASIS [None]
